FAERS Safety Report 19588930 (Version 2)
Quarter: 2022Q2

REPORT INFORMATION
  Report Type: Spontaneous
  Country: CA (occurrence: None)
  Receive Date: 20210721
  Receipt Date: 20220405
  Transmission Date: 20220721
  Serious: Yes (Other)
  Sender: FDA-Public Use
  Company Number: 2021A622498

PATIENT
  Age: 76 Year
  Sex: Female

DRUGS (9)
  1. FULVESTRANT [Suspect]
     Active Substance: FULVESTRANT
     Indication: Serous cystadenocarcinoma ovary
     Route: 065
     Dates: start: 20210113
  2. IBRANCE [Suspect]
     Active Substance: PALBOCICLIB
     Indication: Serous cystadenocarcinoma ovary
     Dosage: 125 MG (21 DAYS OF 28 DAYS) 125.0MG UNKNOWN
     Route: 048
     Dates: start: 20210113
  3. TAMOXIFEN [Suspect]
     Active Substance: TAMOXIFEN
     Indication: Serous cystadenocarcinoma ovary
     Dosage: UNKNOWN
     Route: 065
     Dates: start: 2018
  4. METFORMIN [Suspect]
     Active Substance: METFORMIN HYDROCHLORIDE
     Indication: Serous cystadenocarcinoma ovary
     Dosage: UNKNOWN
     Route: 065
     Dates: start: 2021
  5. CARBOPLATIN [Suspect]
     Active Substance: CARBOPLATIN
     Indication: Serous cystadenocarcinoma ovary
     Dosage: UNK (AUC-Y/ TAXOL 4 CYCLES)
     Route: 065
     Dates: start: 2018
  6. GEMCITABINE [Suspect]
     Active Substance: GEMCITABINE
     Indication: Serous cystadenocarcinoma ovary
     Dosage: 800 MG/M2 (6 CYCLES)
     Route: 065
     Dates: start: 2019
  7. LETROZOLE [Suspect]
     Active Substance: LETROZOLE
     Indication: Serous cystadenocarcinoma ovary
     Dosage: UNK
     Route: 065
     Dates: start: 2021
  8. MEGACE [Suspect]
     Active Substance: MEGESTROL ACETATE
     Indication: Serous cystadenocarcinoma ovary
     Dosage: UNKNOWN
     Route: 065
     Dates: start: 2018
  9. DOXORUBICIN HYDROCHLORIDE [Suspect]
     Active Substance: DOXORUBICIN HYDROCHLORIDE
     Indication: Serous cystadenocarcinoma ovary
     Dosage: UNK (11 CYCLES)
     Route: 065
     Dates: start: 2019

REACTIONS (3)
  - Malignant neoplasm progression [Unknown]
  - Serous cystadenocarcinoma ovary [Unknown]
  - Off label use [Unknown]
